FAERS Safety Report 9356282 (Version 1)
Quarter: 2013Q2

REPORT INFORMATION
  Report Type: Spontaneous
  Country: US (occurrence: US)
  Receive Date: 20130619
  Receipt Date: 20130619
  Transmission Date: 20140414
  Serious: Yes (Other)
  Sender: FDA-Public Use
  Company Number: US-BRISTOL-MYERS SQUIBB COMPANY-18990077

PATIENT
  Age: 88 Year
  Sex: Female

DRUGS (3)
  1. ABILIFY [Suspect]
     Indication: DEPRESSION
  2. COLCHICINE [Concomitant]
  3. ALLOPURINOL [Concomitant]

REACTIONS (1)
  - Abasia [Unknown]
